FAERS Safety Report 25786148 (Version 1)
Quarter: 2025Q3

REPORT INFORMATION
  Report Type: Spontaneous
  Country: US (occurrence: None)
  Receive Date: 20250909
  Receipt Date: 20250909
  Transmission Date: 20251020
  Serious: Yes (Other)
  Sender: FDA-CTU
  Company Number: None

PATIENT
  Age: 47 Year
  Sex: Female
  Weight: 102.6 kg

DRUGS (1)
  1. BIMZELX [Suspect]
     Active Substance: BIMEKIZUMAB-BKZX

REACTIONS (6)
  - Skin plaque [None]
  - Alopecia [None]
  - Pruritus [None]
  - Burning sensation [None]
  - Vertigo [None]
  - Tryptase increased [None]

NARRATIVE: CASE EVENT DATE: 20250627
